FAERS Safety Report 13827493 (Version 1)
Quarter: 2017Q3

REPORT INFORMATION
  Report Type: Spontaneous
  Country: BR (occurrence: BR)
  Receive Date: 20170802
  Receipt Date: 20170802
  Transmission Date: 20171127
  Serious: Yes (Other)
  Sender: FDA-Public Use
  Company Number: BR-AMGEN-BRASP2017088799

PATIENT
  Age: 28 Year
  Sex: Female

DRUGS (1)
  1. ENBREL [Suspect]
     Active Substance: ETANERCEPT
     Indication: ANKYLOSING SPONDYLITIS
     Dosage: 50 MG, WEEKLY (ONCE PER WEEK)
     Route: 065
     Dates: start: 2017

REACTIONS (16)
  - Pyrexia [Recovered/Resolved]
  - Sinusitis [Recovered/Resolved]
  - Secretion discharge [Recovered/Resolved]
  - Condition aggravated [Recovered/Resolved]
  - Decreased immune responsiveness [Recovered/Resolved]
  - Pelvic discomfort [Not Recovered/Not Resolved]
  - Loss of libido [Recovered/Resolved]
  - Drug effect delayed [Not Recovered/Not Resolved]
  - Gait inability [Not Recovered/Not Resolved]
  - Pruritus genital [Recovered/Resolved]
  - Stress [Unknown]
  - Headache [Recovered/Resolved]
  - Gait disturbance [Not Recovered/Not Resolved]
  - Pelvic pain [Not Recovered/Not Resolved]
  - Fall [Not Recovered/Not Resolved]
  - Vomiting in pregnancy [Not Recovered/Not Resolved]

NARRATIVE: CASE EVENT DATE: 201702
